FAERS Safety Report 7897958-5 (Version None)
Quarter: 2011Q4

REPORT INFORMATION
  Report Type: 
  Country: None (occurrence: None)
  Receive Date: 20111107
  Receipt Date: 20111103
  Transmission Date: 20120403
  Serious: Yes (Congenital Anomaly, Other)
  Sender: FDA-Public Use
  Company Number: US-PFIZER INC-2011269838

PATIENT

DRUGS (1)
  1. EFFEXOR [Suspect]
     Dosage: UNK

REACTIONS (2)
  - HEART DISEASE CONGENITAL [None]
  - FOETAL EXPOSURE DURING PREGNANCY [None]
